FAERS Safety Report 25231632 (Version 2)
Quarter: 2025Q2

REPORT INFORMATION
  Report Type: Spontaneous
  Country: US (occurrence: US)
  Receive Date: 20250423
  Receipt Date: 20250522
  Transmission Date: 20250716
  Serious: No
  Sender: BIOMARIN
  Company Number: US-SA-2025SA108162

PATIENT

DRUGS (2)
  1. LARONIDASE [Suspect]
     Active Substance: LARONIDASE
     Indication: Mucopolysaccharidosis I
     Dosage: 46.4 MG, QW
     Route: 042
     Dates: end: 202504
  2. LARONIDASE [Suspect]
     Active Substance: LARONIDASE
     Dosage: 46.4 MG, QW
     Route: 042
     Dates: end: 202504

REACTIONS (3)
  - Influenza like illness [Recovering/Resolving]
  - Influenza [Recovering/Resolving]
  - Pyrexia [Recovering/Resolving]

NARRATIVE: CASE EVENT DATE: 20250410
